FAERS Safety Report 18875117 (Version 1)
Quarter: 2021Q1

REPORT INFORMATION
  Report Type: Spontaneous
  Country: FR (occurrence: FR)
  Receive Date: 20210211
  Receipt Date: 20210211
  Transmission Date: 20210420
  Serious: Yes (Hospitalization, Other)
  Sender: FDA-Public Use
  Company Number: FR-AUROBINDO-AUR-APL-2021-005439

PATIENT
  Age: 69 Year
  Sex: Male
  Weight: 66.5 kg

DRUGS (2)
  1. AUGMENTIN [Suspect]
     Active Substance: AMOXICILLIN\CLAVULANATE POTASSIUM
     Indication: ARTHRITIS
     Dosage: UNK
     Route: 048
     Dates: start: 20201203, end: 20201231
  2. AMOXICILLIN. [Suspect]
     Active Substance: AMOXICILLIN
     Indication: ARTHRITIS
     Dosage: UNK
     Route: 048
     Dates: start: 20210101, end: 20210120

REACTIONS (3)
  - Cholestatic liver injury [Recovering/Resolving]
  - Jaundice [Recovered/Resolved]
  - Pruritus [Recovered/Resolved]

NARRATIVE: CASE EVENT DATE: 20210112
